FAERS Safety Report 9366420 (Version 1)
Quarter: 2013Q2

REPORT INFORMATION
  Report Type: Spontaneous
  Country: US (occurrence: US)
  Receive Date: 20130625
  Receipt Date: 20130625
  Transmission Date: 20140414
  Serious: Yes (Other)
  Sender: FDA-Public Use
  Company Number: US-PFIZER INC-2013183854

PATIENT
  Sex: 0

DRUGS (1)
  1. VANCOMYCIN HCL [Suspect]
     Indication: MITRAL VALVE REPAIR
     Dosage: UNK

REACTIONS (2)
  - Sensory loss [Unknown]
  - Respiratory disorder [Unknown]
